FAERS Safety Report 5955984-7 (Version None)
Quarter: 2008Q4

REPORT INFORMATION
  Report Type: 
  Country: None (occurrence: None)
  Receive Date: 20081112
  Receipt Date: 20081030
  Transmission Date: 20090506
  Serious: Yes (Disabling)
  Sender: FDA-Public Use
  Company Number: 2008SP002742

PATIENT
  Age: 49 Year
  Sex: Female

DRUGS (6)
  1. LUNESTA [Suspect]
     Indication: INSOMNIA
     Dosage: 2 MG; HS; ORAL, 3 MG; HS; ORAL, 3 MG; HS; ORAL
     Dates: start: 20080701, end: 20080101
  2. LUNESTA [Suspect]
     Indication: INSOMNIA
     Dosage: 2 MG; HS; ORAL, 3 MG; HS; ORAL, 3 MG; HS; ORAL
     Dates: start: 20080701, end: 20080101
  3. LUNESTA [Suspect]
     Indication: INSOMNIA
     Dosage: 2 MG; HS; ORAL, 3 MG; HS; ORAL, 3 MG; HS; ORAL
     Dates: start: 20080101, end: 20081001
  4. XANAX [Concomitant]
  5. SEROQUEL [Concomitant]
  6. AMBIEN [Concomitant]

REACTIONS (4)
  - AMNESIA [None]
  - IMPAIRED DRIVING ABILITY [None]
  - IMPRISONMENT [None]
  - SOMNAMBULISM [None]
